FAERS Safety Report 14362501 (Version 2)
Quarter: 2018Q1

REPORT INFORMATION
  Report Type: Report from Study
  Country: AR (occurrence: AR)
  Receive Date: 20180108
  Receipt Date: 20180212
  Transmission Date: 20180509
  Serious: Yes (Hospitalization, Other)
  Sender: FDA-Public Use
  Company Number: PHHY2018AR000863

PATIENT
  Age: 68 Year
  Sex: Female

DRUGS (2)
  1. ENTRESTO [Suspect]
     Active Substance: SACUBITRIL\VALSARTAN
     Dosage: 100 MG (SACUBITRIL 49 MG, VALSARTAN 51 MG), BID
     Route: 065
  2. ENTRESTO [Suspect]
     Active Substance: SACUBITRIL\VALSARTAN
     Indication: CARDIAC FAILURE CHRONIC
     Dosage: 50 MG (SACUBITRIL 24 MG, VALSARTAN 26 MG), UNK
     Route: 065
     Dates: start: 201609

REACTIONS (13)
  - Gait disturbance [Unknown]
  - Agitation [Not Recovered/Not Resolved]
  - Pelvic fracture [Recovering/Resolving]
  - Dyspnoea [Not Recovered/Not Resolved]
  - Fall [Unknown]
  - Limb injury [Unknown]
  - Mobility decreased [Unknown]
  - Fatigue [Not Recovered/Not Resolved]
  - Drug ineffective [Unknown]
  - Muscle atrophy [Unknown]
  - Fracture [Unknown]
  - Anaemia [Unknown]
  - Hip fracture [Recovering/Resolving]

NARRATIVE: CASE EVENT DATE: 201612
